FAERS Safety Report 4897848-6 (Version None)
Quarter: 2006Q1

REPORT INFORMATION
  Report Type: 
  Country: None (occurrence: None)
  Receive Date: 20060201
  Receipt Date: 20050511
  Transmission Date: 20060701
  Serious: Yes (Death)
  Sender: FDA-Public Use
  Company Number: 2005-UK-00746UK

PATIENT
  Sex: Male

DRUGS (11)
  1. ALLOPURINOL [Suspect]
     Dosage: 200MG PER DAY
     Route: 065
  2. DIGOXIN [Suspect]
     Dosage: 250MG PER DAY
     Route: 065
  3. BECLOMETHASONE DIPROPIONATE [Suspect]
     Route: 065
  4. VENTOLIN [Suspect]
     Route: 055
  5. PARACETAMOL [Suspect]
     Route: 048
  6. TIOTROPIUM BROMIDE [Suspect]
  7. FUROSEMIDE [Suspect]
     Dosage: 80MG PER DAY
     Route: 065
  8. PANTOPRAZOLE [Suspect]
     Dosage: 20MG PER DAY
     Route: 065
  9. COVERSYL [Suspect]
     Dosage: 4MG PER DAY
     Route: 065
  10. SIMVASTATIN [Suspect]
     Dosage: 40MG PER DAY
     Route: 065
  11. WARFARIN SODIUM [Suspect]
     Route: 048

REACTIONS (1)
  - AORTIC DISSECTION [None]
